FAERS Safety Report 23355125 (Version 1)
Quarter: 2024Q1

REPORT INFORMATION
  Report Type: Other
  Country: US (occurrence: None)
  Receive Date: 20240102
  Receipt Date: 20240102
  Transmission Date: 20240410
  Serious: Yes (Hospitalization)
  Sender: FDA-Public Use
  Company Number: US-ROCHE-3481396

PATIENT
  Age: 60 Year
  Sex: Female
  Weight: 90.8 kg

DRUGS (5)
  1. OCREVUS [Suspect]
     Active Substance: OCRELIZUMAB
     Indication: Relapsing-remitting multiple sclerosis
     Dosage: LAST DOSE WAS ON //2023. ON 12/MAY/2023, 600 MG DOSE WAS INFUSED.
     Route: 042
     Dates: start: 2022
  2. AVONEX [Concomitant]
     Active Substance: INTERFERON BETA-1A
  3. LEXAPRO [Concomitant]
     Active Substance: ESCITALOPRAM OXALATE
     Indication: Depression
     Route: 048
     Dates: start: 2023
  4. LISINOPRIL [Concomitant]
     Active Substance: LISINOPRIL
     Indication: Hypertension
     Route: 048
  5. TIZANIDINE [Concomitant]
     Active Substance: TIZANIDINE
     Indication: Muscle tightness
     Dosage: AT NIGHT
     Route: 048

REACTIONS (9)
  - COVID-19 [Recovered/Resolved]
  - Pulmonary thrombosis [Recovered/Resolved]
  - Vomiting [Unknown]
  - Wheezing [Recovered/Resolved]
  - Muscular weakness [Not Recovered/Not Resolved]
  - Fall [Unknown]
  - Dermal cyst [Recovered/Resolved]
  - Mouth injury [Recovered/Resolved]
  - Head injury [Recovered/Resolved]

NARRATIVE: CASE EVENT DATE: 20231001
